FAERS Safety Report 8086076-1 (Version None)
Quarter: 2012Q1

REPORT INFORMATION
  Report Type: 
  Country: None (occurrence: None)
  Receive Date: 20120128
  Receipt Date: 20110601
  Transmission Date: 20120608
  Serious: No
  Sender: FDA-Public Use
  Company Number: US-ABBOTT-11P-163-0730175-00

PATIENT
  Sex: Female

DRUGS (1)
  1. HUMIRA [Suspect]
     Indication: JUVENILE ARTHRITIS
     Route: 058
     Dates: start: 20100901

REACTIONS (4)
  - HYPERHIDROSIS [None]
  - BLOOD IRON DECREASED [None]
  - NODULE [None]
  - OEDEMA PERIPHERAL [None]
